FAERS Safety Report 7719349-X (Version None)
Quarter: 2011Q3

REPORT INFORMATION
  Report Type: 
  Country: None (occurrence: None)
  Receive Date: 20110830
  Receipt Date: 20110817
  Transmission Date: 20111222
  Serious: Yes (Other)
  Sender: FDA-Public Use
  Company Number: US-ELI_LILLY_AND_COMPANY-US200909001972

PATIENT
  Sex: Female
  Weight: 78.912 kg

DRUGS (13)
  1. ALENDRONATE SODIUM [Concomitant]
     Indication: OSTEOPOROSIS
     Dates: start: 20070101
  2. FLOVENT [Concomitant]
     Indication: ASTHMA
     Dates: start: 20050101
  3. XANAX [Concomitant]
     Indication: ANXIETY
     Dates: start: 20080101
  4. SEREVENT [Concomitant]
     Indication: ASTHMA
     Dates: start: 20050101
  5. CHK-1 INHIBITOR I (LY2603618) [Suspect]
     Indication: NEOPLASM
     Dosage: 70 MG/M2, OTHER
     Route: 042
     Dates: start: 20090421, end: 20090728
  6. WELLBUTRIN [Concomitant]
     Indication: DEPRESSION
     Dates: start: 20080101
  7. COUMADIN [Concomitant]
     Indication: PROPHYLAXIS
     Dosage: 1 MG, UNK
     Dates: start: 19990101
  8. PROAIR HFA [Concomitant]
     Indication: ASTHMA
     Dates: start: 20050101
  9. ZOLPIDEM [Concomitant]
     Indication: INSOMNIA
     Dates: start: 20080101
  10. LEVOTHYROXINE SODIUM [Concomitant]
     Indication: HYPOTHYROIDISM
     Dates: start: 20070101
  11. GEMCITABINE HYDROCHLORIDE [Suspect]
     Indication: NEOPLASM
     Dosage: 1000 MG/M2, WEEKLY (1/W)
     Route: 042
     Dates: start: 20090420, end: 20090727
  12. CALCIUM CARBONATE [Concomitant]
     Indication: SUPPLEMENTATION THERAPY
     Dates: start: 20080101
  13. ALBUTEROL SULFATE AUTOHALER [Concomitant]
     Indication: ASTHMA
     Dates: start: 20050101

REACTIONS (1)
  - NEPHROTIC SYNDROME [None]
